FAERS Safety Report 11071844 (Version 1)
Quarter: 2015Q2

REPORT INFORMATION
  Report Type: Spontaneous
  Country: SE (occurrence: SE)
  Receive Date: 20150428
  Receipt Date: 20150428
  Transmission Date: 20150821
  Serious: Yes (Disabling)
  Sender: FDA-Public Use
  Company Number: SE-TEVA-557762ISR

PATIENT
  Age: 44 Year
  Sex: Female

DRUGS (1)
  1. OLANZAPINE 5 MG TABLETS [Suspect]
     Active Substance: OLANZAPINE
     Route: 048

REACTIONS (2)
  - Hemiparesis [Not Recovered/Not Resolved]
  - Tremor [Not Recovered/Not Resolved]
